FAERS Safety Report 7512878-3 (Version None)
Quarter: 2011Q2

REPORT INFORMATION
  Report Type: 
  Country: None (occurrence: None)
  Receive Date: 20110531
  Receipt Date: 20110520
  Transmission Date: 20111010
  Serious: Yes (Hospitalization, Other)
  Sender: FDA-Public Use
  Company Number: CN-BAYER-201010487GPV

PATIENT
  Age: 41 Year
  Sex: Male
  Weight: 77 kg

DRUGS (7)
  1. SORAFENIB (RAF KINASE INHIBITOR) [Suspect]
     Indication: HEPATIC NEOPLASM MALIGNANT
  2. ASCORBIC ACID [Concomitant]
     Indication: PROPHYLAXIS AGAINST GASTROINTESTINAL ULCER
     Dosage: 1 G (DAILY DOSE), , INTRAVENOUS
     Route: 042
     Dates: start: 20100103
  3. VITAMIN B [Concomitant]
     Indication: PROPHYLAXIS AGAINST GASTROINTESTINAL ULCER
     Dosage: 200 MG (DAILY DOSE), , INTRAVENOUS
     Route: 042
     Dates: start: 20100103
  4. PANCREATIN [Concomitant]
     Indication: DECREASED APPETITE
     Dosage: 900 MG (DAILY DOSE), , ORAL
     Route: 048
     Dates: start: 20100110, end: 20100112
  5. MORPHINE HCL ELIXIR [Concomitant]
     Indication: PAIN
     Dosage: 60 MG (DAILY DOSE), , ORAL
     Route: 048
     Dates: start: 20100106, end: 20100112
  6. PLACEBO [Suspect]
     Indication: HEPATIC NEOPLASM MALIGNANT
  7. POTASSIUM CHLORIDE [Concomitant]
     Indication: MINERAL SUPPLEMENTATION
     Dosage: 10 ML (DAILY DOSE), , INTRAVENOUS
     Route: 042
     Dates: start: 20100103

REACTIONS (2)
  - EASTERN COOPERATIVE ONCOLOGY GROUP PERFORMANCE STATUS WORSENED [None]
  - PYREXIA [None]
